FAERS Safety Report 16218884 (Version 2)
Quarter: 2019Q2

REPORT INFORMATION
  Report Type: Spontaneous
  Country: DE (occurrence: DE)
  Receive Date: 20190419
  Receipt Date: 20190621
  Transmission Date: 20190711
  Serious: Yes (Life-Threatening, Hospitalization, Other)
  Sender: FDA-Public Use
  Company Number: DE-GLAXOSMITHKLINE-DE2019GSK067644

PATIENT
  Age: 57 Year
  Sex: Male

DRUGS (2)
  1. NUCALA [Suspect]
     Active Substance: MEPOLIZUMAB
     Indication: ASTHMA
     Dosage: UNK
     Dates: start: 201605, end: 20190403
  2. SYMBICORT [Concomitant]
     Active Substance: BUDESONIDE\FORMOTEROL FUMARATE DIHYDRATE
     Indication: PRODUCT USED FOR UNKNOWN INDICATION
     Dosage: 2 PUFF(S), BID

REACTIONS (16)
  - Anaphylactic shock [Recovered/Resolved]
  - Generalised erythema [Recovered/Resolved]
  - Rash [Recovered/Resolved]
  - Stridor [Recovered/Resolved]
  - Swelling [Unknown]
  - Throat tightness [Recovered/Resolved]
  - Syncope [Unknown]
  - Cough [Recovered/Resolved]
  - Pruritus generalised [Recovered/Resolved]
  - Urticaria [Recovered/Resolved]
  - Loss of consciousness [Recovered/Resolved]
  - Hypoxia [Unknown]
  - Blood pressure decreased [Recovered/Resolved]
  - Dyspnoea [Unknown]
  - Cold sweat [Unknown]
  - Oral disorder [Unknown]

NARRATIVE: CASE EVENT DATE: 20190214
